FAERS Safety Report 5328147-6 (Version None)
Quarter: 2007Q2

REPORT INFORMATION
  Report Type: 
  Country: None (occurrence: None)
  Receive Date: 20070514
  Receipt Date: 20070427
  Transmission Date: 20071010
  Serious: Yes (Death)
  Sender: FDA-Public Use
  Company Number: 2006002359

PATIENT
  Age: 64 Year
  Sex: Male

DRUGS (1)
  1. TARCEVA [Suspect]
     Dosage: ORAL
     Route: 048

REACTIONS (14)
  - ANISOCYTOSIS [None]
  - BLOOD POTASSIUM INCREASED [None]
  - BLOOD UREA INCREASED [None]
  - GASTROINTESTINAL HAEMORRHAGE [None]
  - HAEMATOCRIT DECREASED [None]
  - HAEMOGLOBIN DECREASED [None]
  - HYPERADRENALISM [None]
  - LUNG CONSOLIDATION [None]
  - LYMPHADENOPATHY MEDIASTINAL [None]
  - NEUTROPHILIA [None]
  - OCCULT BLOOD POSITIVE [None]
  - RED BLOOD CELL COUNT DECREASED [None]
  - RETROPERITONEAL LYMPHADENOPATHY [None]
  - WHITE BLOOD CELL COUNT INCREASED [None]
